FAERS Safety Report 7872305 (Version 2)
Quarter: 2014Q3

REPORT INFORMATION
  Report Type: Spontaneous
  Country: JP (occurrence: None)
  Receive Date: 20110304
  Receipt Date: 20140820
  Transmission Date: 20150326
  Serious: Yes (Hospitalization)
  Sender: FDA-Public Use
  Company Number: JP-20100014

PATIENT
  Age: 76 Year
  Sex: Male

DRUGS (7)
  1. PENTAZOCINE (PENTAZOCINE) (PENTAZOCINE) [Concomitant]
  2. HYDROXYZINE HYDROCHLORIDE. [Concomitant]
     Active Substance: HYDROXYZINE HYDROCHLORIDE
  3. EPIRUBICIN [Suspect]
     Active Substance: EPIRUBICIN
     Indication: THERAPEUTIC EMBOLISATION
     Dosage: 30 MG (30 MG, 1 IN 1 D)
     Route: 013
     Dates: start: 20100407, end: 20100407
  4. METHYLPREDNISOLONE SODIUM SUCCINATE. [Concomitant]
     Active Substance: METHYLPREDNISOLONE SODIUM SUCCINATE
  5. CEFAZOLIN [Concomitant]
     Active Substance: CEFAZOLIN
  6. LIPIODOL ULTRA-FLUIDE [Suspect]
     Active Substance: ETHIODIZED OIL
     Indication: THERAPEUTIC EMBOLISATION
     Dosage: 6 ML (6 ML, 1 IN 1 D)
     Route: 013
     Dates: start: 20100407, end: 20100407
  7. IOMEPROL [Concomitant]
     Active Substance: IOMEPROL
     Indication: THERAPEUTIC EMBOLISATION
     Dosage: 1 ML (1 ML, 1 IN 1 TOTAL)
     Route: 013
     Dates: start: 20100407, end: 20100407

REACTIONS (4)
  - Nausea [None]
  - Malaise [None]
  - Anaphylactic reaction [None]
  - Off label use [None]

NARRATIVE: CASE EVENT DATE: 20100407
